FAERS Safety Report 8479295-3 (Version None)
Quarter: 2012Q2

REPORT INFORMATION
  Report Type: 
  Country: None (occurrence: None)
  Receive Date: 20120629
  Receipt Date: 20120621
  Transmission Date: 20120825
  Serious: Yes (Other)
  Sender: FDA-Public Use
  Company Number: GB-GLAXOSMITHKLINE-B0790996A

PATIENT
  Sex: Male

DRUGS (14)
  1. BENDROFLUMETHIAZIDE [Concomitant]
  2. IBUPROFEN [Concomitant]
  3. SIMVASTATIN [Concomitant]
  4. CODEINE SULFATE [Concomitant]
  5. LORATADINE [Concomitant]
  6. LANSOPRAZOLE [Concomitant]
  7. METFORMIN HCL [Concomitant]
  8. LOPERAMIDE [Concomitant]
  9. TRAMADOL HCL [Concomitant]
  10. AVANDIA [Suspect]
     Indication: TYPE 2 DIABETES MELLITUS
     Dosage: 4MG PER DAY
     Route: 065
     Dates: start: 20060525, end: 20100101
  11. LISINOPRIL [Concomitant]
  12. ALBUTEROL SULATE [Concomitant]
  13. ADIPINE [Concomitant]
  14. DESLORATADINE [Concomitant]

REACTIONS (16)
  - DISABILITY [None]
  - STRESS [None]
  - JOINT INJURY [None]
  - RADIUS FRACTURE [None]
  - DEPRESSION [None]
  - ANXIETY [None]
  - JOINT SWELLING [None]
  - MALAISE [None]
  - ARTHRALGIA [None]
  - ISCHAEMIA [None]
  - ANGINA PECTORIS [None]
  - MUSCULOSKELETAL PAIN [None]
  - MENISCUS LESION [None]
  - SYNOVIAL CYST [None]
  - JOINT LOCK [None]
  - CRYING [None]
